FAERS Safety Report 7615689-3 (Version None)
Quarter: 2011Q3

REPORT INFORMATION
  Report Type: 
  Country: None (occurrence: None)
  Receive Date: 20110715
  Receipt Date: 20110715
  Transmission Date: 20111222
  Serious: No
  Sender: FDA-Public Use
  Company Number: None

PATIENT

DRUGS (1)
  1. VISIONBLUE .06% OPHTHALMIC SOLUTION [Suspect]
     Indication: CATARACT
     Dosage: PRE-FILLED SYRINGE
     Dates: start: 20090519

REACTIONS (1)
  - EYE OEDEMA [None]
